FAERS Safety Report 14314315 (Version 1)
Quarter: 2017Q4

REPORT INFORMATION
  Report Type: Spontaneous
  Country: FR (occurrence: FR)
  Receive Date: 20171221
  Receipt Date: 20171221
  Transmission Date: 20180321
  Serious: Yes (Hospitalization)
  Sender: FDA-Public Use
  Company Number: FR-GILEAD-2017-0312175

PATIENT
  Age: 46 Year
  Sex: Female

DRUGS (1)
  1. EVIPLERA [Suspect]
     Active Substance: EMTRICITABINE\RILPIVIRINE\TENOFOVIR DISOPROXIL FUMARATE
     Indication: HIV INFECTION
     Dosage: 1 DF, UNK
     Route: 048
     Dates: start: 20170923, end: 20171021

REACTIONS (7)
  - Headache [Recovering/Resolving]
  - Pyrexia [Recovering/Resolving]
  - Purpura [Recovering/Resolving]
  - Ecchymosis [Recovering/Resolving]
  - Myalgia [Recovering/Resolving]
  - Metrorrhagia [Recovering/Resolving]
  - Thrombocytopenia [Recovering/Resolving]

NARRATIVE: CASE EVENT DATE: 20171014
